FAERS Safety Report 18463203 (Version 1)
Quarter: 2020Q4

REPORT INFORMATION
  Report Type: Spontaneous
  Country: US (occurrence: US)
  Receive Date: 20201104
  Receipt Date: 20201104
  Transmission Date: 20210114
  Serious: Yes (Other)
  Sender: FDA-Public Use
  Company Number: None

PATIENT
  Age: 82 Year
  Sex: Female
  Weight: 153 kg

DRUGS (11)
  1. GUAIFENESIN 600MG ER TABLET TWICE DAILY [Concomitant]
     Dates: start: 20201103
  2. METOPROLOL SUCCINATE 25MG [Concomitant]
     Active Substance: METOPROLOL SUCCINATE
     Dates: start: 20201101
  3. FAMOTIDINE 20MG TWICE DAILY [Concomitant]
     Dates: start: 20201102
  4. AZITHROMYCIN 250MG [Concomitant]
     Active Substance: AZITHROMYCIN ANHYDROUS
     Dates: start: 20201102
  5. THIAMINE 200MG TWICE DAILY [Concomitant]
     Dates: start: 20201102
  6. ZINC SULFATE 220 MG [Concomitant]
     Dates: start: 20201102
  7. REMDESIVIR. [Suspect]
     Active Substance: REMDESIVIR
     Indication: SARS-COV-2 TEST POSITIVE
     Route: 042
     Dates: start: 20201102, end: 20201104
  8. ASCORBIC ACID 1000MG [Concomitant]
     Dates: start: 20201101
  9. METHYLPREDNISOLONE SODIUM SUCCINATE INJECTION 40MG EVERY 8 HOURS [Concomitant]
     Dates: start: 20201103
  10. XARELTO [Concomitant]
     Active Substance: RIVAROXABAN
     Dates: start: 20201101
  11. CALCIUM CARBONATE - VITAMIN D 500MG - 200 UNIT [Concomitant]
     Dates: start: 20201101

REACTIONS (2)
  - Nephropathy toxic [None]
  - Hepatotoxicity [None]

NARRATIVE: CASE EVENT DATE: 20201104
